FAERS Safety Report 18455245 (Version 4)
Quarter: 2021Q1

REPORT INFORMATION
  Report Type: Spontaneous
  Country: US (occurrence: US)
  Receive Date: 20201103
  Receipt Date: 20210311
  Transmission Date: 20210419
  Serious: Yes (Other)
  Sender: FDA-Public Use
  Company Number: US-GILEAD-2020-0501575

PATIENT
  Age: 64 Year
  Sex: Female

DRUGS (2)
  1. VIREAD [Suspect]
     Active Substance: TENOFOVIR DISOPROXIL FUMARATE
     Indication: HIV INFECTION
     Dosage: UNK
     Route: 048
     Dates: start: 2001, end: 2018
  2. VIREAD [Suspect]
     Active Substance: TENOFOVIR DISOPROXIL FUMARATE
     Dosage: UNK
     Route: 048
     Dates: start: 2005, end: 2018

REACTIONS (14)
  - Spinal fracture [Recovered/Resolved]
  - Anhedonia [Unknown]
  - Bone density decreased [Unknown]
  - Clavicle fracture [Recovered/Resolved]
  - Multiple fractures [Unknown]
  - Wrist fracture [Unknown]
  - Osteonecrosis [Unknown]
  - Bone density abnormal [Unknown]
  - Renal injury [Unknown]
  - Bone loss [Unknown]
  - Tooth loss [Unknown]
  - Pain [Unknown]
  - Emotional distress [Unknown]
  - Anxiety [Unknown]

NARRATIVE: CASE EVENT DATE: 2017
